FAERS Safety Report 21989468 (Version 1)
Quarter: 2023Q1

REPORT INFORMATION
  Report Type: Spontaneous
  Country: JP (occurrence: JP)
  Receive Date: 20230214
  Receipt Date: 20230214
  Transmission Date: 20230417
  Serious: Yes (Death)
  Sender: FDA-Public Use
  Company Number: JP-TEVA-2023-JP-2855862

PATIENT

DRUGS (4)
  1. CARBOPLATIN [Suspect]
     Active Substance: CARBOPLATIN
     Indication: Small cell lung cancer extensive stage
     Dosage: ON DAY 1 OF EACH CYCLE; 4 CYCLES
     Route: 042
  2. ATEZOLIZUMAB [Suspect]
     Active Substance: ATEZOLIZUMAB
     Indication: Small cell lung cancer extensive stage
     Dosage: ON DAY 1 OF EACH CYCLE; 4 CYCLES, 1200 MG
     Route: 042
  3. ATEZOLIZUMAB [Suspect]
     Active Substance: ATEZOLIZUMAB
     Dosage: CYCLICAL ATEZOLIZUMAB MAINTENANCE THERAPY; 3 CYCLES
     Route: 042
  4. ETOPOSIDE [Suspect]
     Active Substance: ETOPOSIDE
     Indication: Small cell lung cancer extensive stage
     Dosage: ON DAYS 1 THROUGH 3 OF EACH CYCLE; 4 CYCLES
     Route: 042

REACTIONS (2)
  - Pneumonia bacterial [Fatal]
  - Lung abscess [Fatal]
